FAERS Safety Report 12481750 (Version 13)
Quarter: 2019Q3

REPORT INFORMATION
  Report Type: Report from Study
  Country: US (occurrence: US)
  Receive Date: 20160620
  Receipt Date: 20190826
  Transmission Date: 20191004
  Serious: Yes (Hospitalization, Other)
  Sender: FDA-Public Use
  Company Number: US-INCYTE CORPORATION-2016IN002545

PATIENT

DRUGS (83)
  1. RESTASIS [Concomitant]
     Active Substance: CYCLOSPORINE
     Indication: DRY EYE
     Dosage: 1 GTT (DROP), BID
     Route: 047
     Dates: start: 2006, end: 20170711
  2. ZOLPIDEM [Concomitant]
     Active Substance: ZOLPIDEM TARTRATE
     Indication: PRODUCT USED FOR UNKNOWN INDICATION
     Route: 065
  3. ERGOCALCIFEROL. [Concomitant]
     Active Substance: ERGOCALCIFEROL
     Indication: VITAMIN D DEFICIENCY
     Dosage: 50000 IU, WEEKLY
     Route: 065
     Dates: start: 20070925, end: 20181125
  4. MAGNESIUM OXIDE. [Concomitant]
     Active Substance: MAGNESIUM OXIDE
     Indication: NUTRITIONAL SUPPLEMENTATION
     Dosage: 400 MG, QD
     Route: 065
     Dates: start: 20151230
  5. NICOTINAMIDE [Concomitant]
     Active Substance: NIACINAMIDE
     Indication: PRODUCT USED FOR UNKNOWN INDICATION
     Dosage: 500 MG, QD
     Route: 065
     Dates: start: 20091014
  6. COLACE [Concomitant]
     Active Substance: DOCUSATE SODIUM
     Indication: CONSTIPATION
     Dosage: 100 MG, BID PRN
     Route: 065
     Dates: start: 20160603, end: 20180724
  7. LYRICA [Concomitant]
     Active Substance: PREGABALIN
     Dosage: 50 MG, BID PRN
     Route: 065
     Dates: start: 20170816, end: 20180430
  8. SIMETHICONE (DIMETHICONE) [Concomitant]
     Active Substance: DIMETHICONE
     Indication: FLATULENCE
     Dosage: 80 MG, Q6H PRN
     Route: 065
     Dates: start: 20170814, end: 20180111
  9. BECLOMETASON [Concomitant]
     Active Substance: BECLOMETHASONE DIPROPIONATE
     Indication: ASTHMA
     Dosage: 2 PUFFS, BID
     Dates: start: 20171026
  10. JAKAFI [Suspect]
     Active Substance: RUXOLITINIB
     Dosage: 20 MG, BID
     Route: 048
     Dates: start: 20150218, end: 20160104
  11. JAKAFI [Suspect]
     Active Substance: RUXOLITINIB
     Dosage: 20 MG, BID
     Route: 048
     Dates: start: 20160204, end: 20170815
  12. ASPIRIN. [Concomitant]
     Active Substance: ASPIRIN
     Indication: ESSENTIAL THROMBOCYTHAEMIA
  13. LIDODERM [Concomitant]
     Active Substance: LIDOCAINE
     Indication: BACK PAIN
     Dosage: 2 PATCH, QD
     Route: 065
     Dates: start: 20110826
  14. HYDROCORTISON ACETATE [Concomitant]
     Indication: HAEMORRHOIDS
  15. TRIAMCINOLONE ACETONIDE. [Concomitant]
     Active Substance: TRIAMCINOLONE ACETONIDE
     Indication: MOUTH ULCERATION
     Dosage: 1 APP, PRN
     Route: 065
     Dates: start: 20160310
  16. CLINDAMYCIN. [Concomitant]
     Active Substance: CLINDAMYCIN
     Indication: INFECTION PROPHYLAXIS
     Dosage: 600 MG, SINGLE
     Route: 065
     Dates: start: 20160602, end: 20160602
  17. HYDRALAZINE [Concomitant]
     Active Substance: HYDRALAZINE HYDROCHLORIDE
     Indication: HYPERTENSION
     Dosage: 5 MG, SINGLE
     Route: 065
     Dates: start: 20170814, end: 20170814
  18. DEPAKOTE [Concomitant]
     Active Substance: DIVALPROEX SODIUM
     Indication: BIPOLAR DISORDER
     Dosage: 250 MG, 2 TABLETS IN AM AND 3 TABLETS IN PM
     Route: 065
     Dates: start: 20060705
  19. ALBUTEROL. [Concomitant]
     Active Substance: ALBUTEROL
     Indication: UPPER RESPIRATORY TRACT INFECTION
  20. ASPIRIN. [Concomitant]
     Active Substance: ASPIRIN
     Indication: POLYCYTHAEMIA VERA
     Dosage: 81 MG, QD
     Route: 048
     Dates: start: 1993
  21. ZANTAC [Concomitant]
     Active Substance: RANITIDINE HYDROCHLORIDE
     Indication: GASTROOESOPHAGEAL REFLUX DISEASE
     Dosage: 150 MG, BID
     Route: 065
     Dates: start: 20160219
  22. OXYCODONE [Concomitant]
     Active Substance: OXYCODONE
     Indication: PAIN
     Dosage: 5 MG (1 TABLET), EVERY SIX HOURS AS NEEDED
     Route: 048
  23. BICARBONATE SODA [Concomitant]
     Indication: PRODUCT USED FOR UNKNOWN INDICATION
     Dosage: UNK
     Route: 065
     Dates: start: 20141002
  24. VENOFER [Concomitant]
     Active Substance: IRON SUCROSE
     Indication: IRON DEFICIENCY
     Dosage: 200 MG, SINGLE
     Route: 065
     Dates: start: 20170816, end: 20170816
  25. AZITHROMYCIN ANHYDROUS. [Concomitant]
     Active Substance: AZITHROMYCIN ANHYDROUS
     Indication: TOOTH INFECTION
     Dosage: 50 MG, QD
     Route: 065
     Dates: start: 20180319, end: 20180324
  26. FERAHEME [Concomitant]
     Active Substance: FERUMOXYTOL NON-STOICHIOMETRIC MAGNETITE
     Dosage: 510 MG, QD
     Route: 065
     Dates: start: 20180316, end: 20180316
  27. FERAHEME [Concomitant]
     Active Substance: FERUMOXYTOL NON-STOICHIOMETRIC MAGNETITE
     Dosage: 510 MG, QD
     Route: 065
     Dates: start: 20181015, end: 20181015
  28. RECLAST [Concomitant]
     Active Substance: ZOLEDRONIC ACID
     Indication: PRODUCT USED FOR UNKNOWN INDICATION
     Route: 065
  29. FLOVENT [Concomitant]
     Active Substance: FLUTICASONE PROPIONATE
     Indication: ASTHMA
     Dosage: 250 ?G, BID
     Route: 065
     Dates: start: 20140225, end: 20190429
  30. ALBUTEROL. [Concomitant]
     Active Substance: ALBUTEROL
     Indication: ASTHMA
     Dosage: 2 PUFFS, Q4H
     Route: 065
     Dates: start: 20100322
  31. CALCIUM PLUS VITAMIN D [Concomitant]
     Active Substance: CALCIUM\VITAMIN D
     Indication: NUTRITIONAL SUPPLEMENTATION
     Dosage: 1 TABLET, BID
     Route: 065
     Dates: start: 2006
  32. NORTRIPTYLINE HCL [Concomitant]
     Active Substance: NORTRIPTYLINE HYDROCHLORIDE
     Indication: NEUROPATHY PERIPHERAL
     Dosage: 10 MG, QD
     Route: 065
     Dates: start: 20120909, end: 20170817
  33. ACETAMINOPHEN. [Concomitant]
     Active Substance: ACETAMINOPHEN
     Indication: HEADACHE
     Dosage: 500 MG, Q6H PRN
     Route: 065
     Dates: start: 20160614, end: 20180329
  34. CODEINE [Concomitant]
     Active Substance: CODEINE
     Indication: HERPES ZOSTER
     Dosage: 15 MG, TWICE
     Route: 065
     Dates: start: 20170814, end: 20170815
  35. MAGNESIUM CITRATE. [Concomitant]
     Active Substance: MAGNESIUM CITRATE
     Indication: CONSTIPATION
     Dosage: 296 ML. SINGLE
     Route: 065
     Dates: start: 20170815, end: 20170815
  36. SIMETHICONE (DIMETHICONE) [Concomitant]
     Active Substance: DIMETHICONE
     Indication: ABDOMINAL DISCOMFORT
  37. VALTREX [Concomitant]
     Active Substance: VALACYCLOVIR HYDROCHLORIDE
     Indication: HERPES ZOSTER
     Dosage: 1000 MG, TID
     Route: 065
     Dates: start: 20170807, end: 20170817
  38. KENALOG [Concomitant]
     Active Substance: TRIAMCINOLONE ACETONIDE
     Indication: ARTHRALGIA
     Dosage: 10 MG, ONCE
     Route: 065
     Dates: start: 20180130, end: 20180130
  39. HYDROXYUREA. [Suspect]
     Active Substance: HYDROXYUREA
     Dosage: 500 MILLIGRAM, 3X/WEEK - MWF
     Route: 065
     Dates: start: 20190308
  40. FLOVENT [Concomitant]
     Active Substance: FLUTICASONE PROPIONATE
     Indication: COUGH
  41. FLOVENT [Concomitant]
     Active Substance: FLUTICASONE PROPIONATE
     Indication: UPPER RESPIRATORY TRACT INFECTION
  42. CALCIUM [Concomitant]
     Active Substance: CALCIUM
     Indication: PRODUCT USED FOR UNKNOWN INDICATION
     Route: 065
  43. ATROVENT [Concomitant]
     Active Substance: IPRATROPIUM BROMIDE
     Indication: RHINITIS ALLERGIC
     Dosage: 21 UG, BID
     Route: 045
     Dates: start: 20081201, end: 20170711
  44. MIRALAX [Concomitant]
     Active Substance: POLYETHYLENE GLYCOL 3350
     Indication: HAEMORRHOIDS
  45. VITAMIN B COMPLEX [Concomitant]
     Active Substance: CYANOCOBALAMIN\DEXPANTHENOL\NIACINAMIDE\PYRIDOXINE HYDROCHLORIDE\RIBOFLAVIN 5^-PHOSPHATE SODIUM\THIAMINE HYDROCHLORIDE\VITAMIN B COMPLEX
     Indication: NUTRITIONAL SUPPLEMENTATION
     Dosage: 1 TABLET, QD
     Route: 065
     Dates: start: 20141002
  46. SODIUM BICARBONATE. [Concomitant]
     Active Substance: SODIUM BICARBONATE
     Indication: PRODUCT USED FOR UNKNOWN INDICATION
     Dosage: UNKNOWN
     Route: 065
  47. PROCTOSOL [Concomitant]
     Indication: HAEMORRHOIDS
     Dosage: 1 APP, BID
     Route: 065
     Dates: start: 20150822, end: 20151211
  48. ENOXAPARIN [Concomitant]
     Active Substance: ENOXAPARIN
     Indication: THROMBOSIS PROPHYLAXIS
     Dosage: 40 MG, QD
     Route: 065
     Dates: start: 20160603, end: 20160607
  49. FENTANYL. [Concomitant]
     Active Substance: FENTANYL
     Indication: THERAPEUTIC PROCEDURE
     Dosage: 20 MILLIGRAM ONCE
     Route: 065
     Dates: start: 20190426, end: 20190426
  50. GAVILYTE N [Concomitant]
     Indication: ENDOSCOPY
     Dosage: 420 GRAM ONCE
     Route: 065
     Dates: start: 20190411, end: 20190411
  51. KEPPRA [Concomitant]
     Active Substance: LEVETIRACETAM
     Indication: SUBDURAL HAEMATOMA
     Dosage: 250 MILLIGRAM, BID
     Route: 065
     Dates: start: 20190628, end: 20190702
  52. JAKAFI [Suspect]
     Active Substance: RUXOLITINIB
     Indication: POLYCYTHAEMIA VERA
     Dosage: 20 MG, BID
     Route: 048
     Dates: start: 20150106
  53. JAKAFI [Suspect]
     Active Substance: RUXOLITINIB
     Dosage: 20 MG, BID
     Route: 048
     Dates: start: 20170818
  54. HYDROXYUREA. [Suspect]
     Active Substance: HYDROXYUREA
     Dosage: 1000 MG, FIVE TWICE A WEEK AS WELL
     Route: 065
     Dates: end: 201501
  55. MIRALAX [Concomitant]
     Active Substance: POLYETHYLENE GLYCOL 3350
     Indication: CONSTIPATION
     Dosage: 17 G, QD
     Route: 065
     Dates: start: 20111223, end: 20180111
  56. FISH OIL [Concomitant]
     Active Substance: FISH OIL
     Indication: VITAMIN SUPPLEMENTATION
     Dosage: 1200 MG, BID
     Route: 065
     Dates: start: 20110829
  57. PRILOSEC [Concomitant]
     Active Substance: OMEPRAZOLE MAGNESIUM
     Indication: GASTROOESOPHAGEAL REFLUX DISEASE
     Dosage: 20 MG, QD
     Route: 065
     Dates: start: 20060711
  58. ZOLPIDEM TARTRATE. [Concomitant]
     Active Substance: ZOLPIDEM TARTRATE
     Indication: INSOMNIA
     Dosage: 5 MG, PRN
     Route: 065
     Dates: start: 20130430
  59. ZOLEDRONIC ACID [Concomitant]
     Active Substance: ZOLEDRONIC ACID
     Indication: OSTEOPOROSIS
     Dosage: 5 MG, QY
     Route: 065
     Dates: start: 20120117
  60. MAGNESIUM CITRATE. [Concomitant]
     Active Substance: MAGNESIUM CITRATE
     Dosage: 296 MG, SINGLE
     Route: 065
     Dates: start: 20170816, end: 20170816
  61. TRAMADOL. [Concomitant]
     Active Substance: TRAMADOL
     Indication: NECK PAIN
     Dosage: UNK
     Route: 065
     Dates: start: 20180717, end: 20180719
  62. FERROUS FUMARATE [Concomitant]
     Active Substance: FERROUS FUMARATE
     Indication: IRON DEFICIENCY
     Dosage: 1 TABLET QD
     Route: 065
     Dates: start: 20160921, end: 20181105
  63. HYDROXYUREA. [Suspect]
     Active Substance: HYDROXYUREA
     Indication: POLYCYTHAEMIA VERA
     Dosage: 1500 MG, TWICE A WEEK
     Route: 065
     Dates: start: 1991
  64. HYDROCORTISON ACETATE [Concomitant]
     Indication: CONSTIPATION
     Dosage: 25 MG, PRN
     Route: 065
     Dates: start: 20150713, end: 20160209
  65. ENOXAPARIN [Concomitant]
     Active Substance: ENOXAPARIN
     Indication: PULMONARY EMBOLISM
     Dosage: 40 MG/ML/MIN
     Route: 065
     Dates: start: 20190410
  66. BETADINE [Concomitant]
     Active Substance: POVIDONE-IODINE
     Indication: CONTUSION
     Dosage: 1 DF, PRN
     Route: 065
     Dates: start: 20170616, end: 20180111
  67. VENOFER [Concomitant]
     Active Substance: IRON SUCROSE
     Dosage: 200 MG, SINGLE
     Route: 065
     Dates: start: 20170817, end: 20170817
  68. FLUTICASONE PROPIONATE. [Concomitant]
     Active Substance: FLUTICASONE PROPIONATE
     Indication: ASTHMA
     Dosage: 1 SPRAY, QD
     Route: 045
     Dates: start: 20170327, end: 20181105
  69. FERAHEME [Concomitant]
     Active Substance: FERUMOXYTOL NON-STOICHIOMETRIC MAGNETITE
     Indication: IRON DEFICIENCY
     Dosage: 510 MG, QD
     Route: 065
     Dates: start: 20180308, end: 20180308
  70. JAKAFI [Suspect]
     Active Substance: RUXOLITINIB
     Dosage: 20 MG, BID
     Route: 048
     Dates: start: 20150218, end: 20170814
  71. HYDROXYUREA. [Suspect]
     Active Substance: HYDROXYUREA
     Dosage: 500 MG, QD
     Route: 065
     Dates: start: 20171101, end: 20190307
  72. ZOCOR [Concomitant]
     Active Substance: SIMVASTATIN
     Indication: HYPERLIPIDAEMIA
     Dosage: 40 MG, QD
     Route: 065
     Dates: start: 2006, end: 20150730
  73. WARFARIN [Concomitant]
     Active Substance: WARFARIN
     Indication: PULMONARY EMBOLISM
     Dosage: 2.5 TABLETS QD FOR FOUR DAYS OF WEEK, 3 TABLETS QD FOR 3 DAYS OF WEEK
     Route: 065
     Dates: start: 1996, end: 20160526
  74. WARFARIN [Concomitant]
     Active Substance: WARFARIN
     Dosage: 5 MG, QD
     Route: 065
     Dates: start: 20160604, end: 20170815
  75. WARFARIN [Concomitant]
     Active Substance: WARFARIN
     Dosage: 5 MG, UNK
     Route: 065
     Dates: start: 20170817
  76. TYLENOL WITH CODEINE [Concomitant]
     Active Substance: ACETAMINOPHEN\CODEINE PHOSPHATE
     Indication: PRODUCT USED FOR UNKNOWN INDICATION
     Route: 065
  77. ACETAMINOPHEN. [Concomitant]
     Active Substance: ACETAMINOPHEN
     Indication: HERPES ZOSTER
     Dosage: 650 MG, Q6H PRN
     Route: 065
     Dates: start: 20170814, end: 20170817
  78. LYRICA [Concomitant]
     Active Substance: PREGABALIN
     Indication: HERPES ZOSTER
     Dosage: 50 MG, SINGLE
     Route: 065
     Dates: start: 20170815
  79. SENNA                              /00142201/ [Concomitant]
     Active Substance: SENNA LEAF
     Indication: CONSTIPATION
     Dosage: 1 DF, QD
     Route: 048
     Dates: start: 20160605, end: 20180111
  80. MEPIVACAINE [Concomitant]
     Active Substance: MEPIVACAINE HYDROCHLORIDE
     Indication: ARTHRALGIA
     Dosage: 1 ML, ONCE
     Route: 065
     Dates: start: 20180130, end: 20180130
  81. TESSALON [Concomitant]
     Active Substance: BENZONATATE
     Indication: COUGH
     Dosage: 100 MG, TID
     Route: 065
     Dates: start: 20181222, end: 20190101
  82. FERAHEME [Concomitant]
     Active Substance: FERUMOXYTOL NON-STOICHIOMETRIC MAGNETITE
     Dosage: 510 MG, QD
     Route: 065
     Dates: start: 20181022, end: 20181022
  83. DIPRIVAN [Concomitant]
     Active Substance: PROPOFOL
     Indication: THERAPEUTIC PROCEDURE
     Dosage: 20 MILLIGRAM ONCE
     Route: 065
     Dates: start: 20190426, end: 20190426

REACTIONS (77)
  - Pain [Not Recovered/Not Resolved]
  - Pain in extremity [Recovered/Resolved]
  - Abdominal discomfort [Recovered/Resolved]
  - Vomiting [Recovered/Resolved]
  - Paraesthesia [Recovered/Resolved]
  - Nausea [Recovered/Resolved]
  - Arthralgia [Not Recovered/Not Resolved]
  - Pruritus [Recovered/Resolved]
  - Headache [Recovered/Resolved]
  - Headache [Recovered/Resolved]
  - Iron deficiency [Not Recovered/Not Resolved]
  - Loss of proprioception [Not Recovered/Not Resolved]
  - Dysphagia [Recovered/Resolved]
  - Hypermetropia [Not Recovered/Not Resolved]
  - Decreased activity [Not Recovered/Not Resolved]
  - Neck pain [Not Recovered/Not Resolved]
  - Diarrhoea [Recovered/Resolved]
  - Cough [Recovered/Resolved]
  - Arthralgia [Not Recovered/Not Resolved]
  - Squamous cell carcinoma of the tongue [Recovered/Resolved]
  - Cerebral haematoma [Recovered/Resolved]
  - Tongue ulceration [Unknown]
  - Tongue haemorrhage [Recovered/Resolved]
  - Laryngitis [Not Recovered/Not Resolved]
  - Dysphonia [Recovered/Resolved]
  - Cerumen impaction [Recovered/Resolved]
  - Astigmatism [Not Recovered/Not Resolved]
  - Tongue injury [Recovered/Resolved]
  - Back pain [Recovered/Resolved]
  - Neck pain [Recovered/Resolved]
  - Urinary incontinence [Not Recovered/Not Resolved]
  - Arthralgia [Recovered/Resolved]
  - Postoperative respiratory failure [Recovered/Resolved]
  - Urinary retention [Recovered/Resolved]
  - Atrial fibrillation [Recovered/Resolved]
  - Herpes zoster [Recovered/Resolved]
  - Red blood cell count decreased [Unknown]
  - Gait disturbance [Not Recovered/Not Resolved]
  - Ecchymosis [Recovered/Resolved]
  - Haematoma [Not Recovered/Not Resolved]
  - Piriformis syndrome [Not Recovered/Not Resolved]
  - Diverticulum [Recovered/Resolved]
  - Abdominal pain [Recovered/Resolved]
  - Cellulitis [Recovered/Resolved]
  - Nodule [Unknown]
  - Pain in extremity [Recovered/Resolved]
  - Phlebitis superficial [Recovered/Resolved]
  - Presbyopia [Not Recovered/Not Resolved]
  - Muscle strain [Recovered/Resolved]
  - Nausea [Recovered/Resolved]
  - Headache [Recovered/Resolved]
  - Oedema [Recovered/Resolved]
  - Ecchymosis [Recovered/Resolved]
  - Flatulence [Recovered/Resolved]
  - Oral infection [Not Recovered/Not Resolved]
  - Musculoskeletal pain [Not Recovered/Not Resolved]
  - Costochondritis [Recovered/Resolved]
  - Contusion [Recovered/Resolved]
  - Pruritus [Recovered/Resolved]
  - Platelet count increased [Unknown]
  - Upper respiratory tract infection [Recovered/Resolved]
  - Nasal oedema [Recovered/Resolved]
  - Cyst [Not Recovered/Not Resolved]
  - Urinary tract infection [Recovered/Resolved]
  - Oedema peripheral [Recovered/Resolved]
  - Herpes zoster [Recovered/Resolved]
  - Dyspnoea [Recovered/Resolved]
  - Contusion [Recovered/Resolved]
  - Rectal haemorrhage [Recovered/Resolved]
  - Nasal septum deviation [Not Recovered/Not Resolved]
  - Scab [Recovered/Resolved]
  - Mouth haemorrhage [Recovered/Resolved]
  - Ecchymosis [Recovered/Resolved]
  - Depression [Not Recovered/Not Resolved]
  - Bone marrow disorder [Not Recovered/Not Resolved]
  - Contusion [Recovered/Resolved]
  - Cough [Recovered/Resolved]

NARRATIVE: CASE EVENT DATE: 20151207
